FAERS Safety Report 5372761-9 (Version None)
Quarter: 2007Q2

REPORT INFORMATION
  Report Type: 
  Country: None (occurrence: None)
  Receive Date: 20070626
  Receipt Date: 20070615
  Transmission Date: 20071010
  Serious: Yes (Life-Threatening, Hospitalization)
  Sender: FDA-Public Use
  Company Number: GXKR2007PL05240

PATIENT
  Age: 22 Year
  Sex: Female

DRUGS (2)
  1. FLUOXETINE [Suspect]
     Dosage: 600 MG/DAY, ORAL
     Route: 048
  2. LAMOTRIGINE [Suspect]
     Dosage: 3000 MG/DAY, ORAL
     Route: 048

REACTIONS (17)
  - AREFLEXIA [None]
  - BRUXISM [None]
  - COMA [None]
  - DRUG INTERACTION [None]
  - DRUG TOXICITY [None]
  - EXTENSOR PLANTAR RESPONSE [None]
  - HYPERTONIA [None]
  - INTENTIONAL OVERDOSE [None]
  - MYDRIASIS [None]
  - NERVOUS SYSTEM DISORDER [None]
  - NYSTAGMUS [None]
  - PSYCHOMOTOR HYPERACTIVITY [None]
  - PUPILLARY REFLEX IMPAIRED [None]
  - RHABDOMYOLYSIS [None]
  - STRABISMUS [None]
  - SUICIDE ATTEMPT [None]
  - TRISMUS [None]
